FAERS Safety Report 4787271-7 (Version None)
Quarter: 2005Q3

REPORT INFORMATION
  Report Type: 
  Country: None (occurrence: None)
  Receive Date: 20050927
  Receipt Date: 20050617
  Transmission Date: 20060218
  Serious: No
  Sender: FDA-Public Use
  Company Number: USA0506100783

PATIENT
  Age: 10 Year
  Sex: Male
  Weight: 36 kg

DRUGS (1)
  1. STRATTERA [Suspect]
     Indication: ATTENTION DEFICIT/HYPERACTIVITY DISORDER
     Dosage: 60 MG
     Dates: start: 20040801, end: 20050501

REACTIONS (8)
  - ABNORMAL BEHAVIOUR [None]
  - ANXIETY [None]
  - BURNING SENSATION [None]
  - COORDINATION ABNORMAL [None]
  - CRYING [None]
  - DISTURBANCE IN ATTENTION [None]
  - DYSPHONIA [None]
  - PRESCRIBED OVERDOSE [None]
